FAERS Safety Report 23037422 (Version 1)
Quarter: 2023Q4

REPORT INFORMATION
  Report Type: Spontaneous
  Country: RU (occurrence: RU)
  Receive Date: 20231006
  Receipt Date: 20231006
  Transmission Date: 20240109
  Serious: Yes (Hospitalization, Other)
  Sender: FDA-Public Use
  Company Number: RU-MLMSERVICE-20230919-4541984-1

PATIENT
  Age: 41 Year
  Sex: Female
  Weight: 80 kg

DRUGS (5)
  1. CARBOPLATIN [Suspect]
     Active Substance: CARBOPLATIN
     Indication: Ovarian cancer stage IV
     Dosage: AUC 6 1 HOUR ON DAY 1 OF A 21-DAY CYCLE (NEOADJUVANT )
     Route: 042
     Dates: start: 2018
  2. PACLITAXEL [Suspect]
     Active Substance: PACLITAXEL
     Indication: Ovarian cancer stage IV
     Dosage: 3 HOURS ON DAY 1 OF A 21-DAY CYCLE (NEUADJUVANT)
     Route: 042
     Dates: start: 2018
  3. CAPTOPRIL [Concomitant]
     Active Substance: CAPTOPRIL
     Indication: Essential hypertension
     Dosage: OCCASIONALLY
  4. CARBOPLATIN [Suspect]
     Active Substance: CARBOPLATIN
     Indication: Ovarian cancer stage IV
     Dosage: AUC 5 IV 1 HOUR ON DAY 1 OF A 21-DAY CYCLE (ADJUVANT)
     Route: 042
     Dates: start: 20180511
  5. PACLITAXEL [Suspect]
     Active Substance: PACLITAXEL
     Indication: Ovarian cancer stage IV
     Dosage: 175 MG/M2 IV 3 HOURS ON DAY 1 OF A 21-DAY CYCLE (6 CYCLE), ADJUVANT
     Route: 042
     Dates: start: 20180511

REACTIONS (2)
  - Cardiac failure congestive [Recovering/Resolving]
  - Dilated cardiomyopathy [Recovering/Resolving]

NARRATIVE: CASE EVENT DATE: 20210801
